FAERS Safety Report 5294000-X (Version None)
Quarter: 2007Q2

REPORT INFORMATION
  Report Type: 
  Country: None (occurrence: None)
  Receive Date: 20070405
  Receipt Date: 20070328
  Transmission Date: 20071010
  Serious: Yes (Other)
  Sender: FDA-Public Use
  Company Number: 2006S1000240

PATIENT
  Age: 7 Year
  Sex: Female
  Weight: 21.7727 kg

DRUGS (3)
  1. LUXIQ [Suspect]
     Indication: ALOPECIA TOTALIS
     Dosage: 0.12 PCT; ;TOP
     Route: 061
     Dates: start: 20050808, end: 20060801
  2. OLUX [Suspect]
     Indication: ALOPECIA TOTALIS
     Dosage: 0.05 PCT;BIW;TOP
     Route: 061
     Dates: start: 20050808, end: 20060801
  3. KENALOG [Suspect]
     Indication: ALOPECIA TOTALIS
     Dosage: 15 MG;QM;

REACTIONS (2)
  - BLOOD CORTISOL DECREASED [None]
  - GROWTH RETARDATION [None]
